FAERS Safety Report 4333029-2 (Version None)
Quarter: 2004Q1

REPORT INFORMATION
  Report Type: 
  Country: None (occurrence: None)
  Receive Date: 20040330
  Receipt Date: 20040318
  Transmission Date: 20041129
  Serious: Yes (Hospitalization)
  Sender: FDA-Public Use
  Company Number: 2004194854DE

PATIENT
  Age: 41 Year
  Sex: Male

DRUGS (6)
  1. SOMAVERT [Suspect]
     Indication: ACROMEGALY
     Dosage: SEE IMAGE
     Route: 058
     Dates: end: 20031229
  2. SOMAVERT [Suspect]
     Indication: ACROMEGALY
     Dosage: SEE IMAGE
     Route: 058
     Dates: start: 20030911
  3. SANDOSTATIN [Concomitant]
  4. BROMOCRIPTINE MESYLATE [Concomitant]
  5. METOBETA [Concomitant]
  6. TESTOSTERONE [Concomitant]

REACTIONS (6)
  - ABDOMINAL PAIN [None]
  - BILE DUCT OBSTRUCTION [None]
  - BILE DUCT STONE [None]
  - BILIARY COLIC [None]
  - DIVERTICULUM INTESTINAL [None]
  - HEPATOCELLULAR DAMAGE [None]
